FAERS Safety Report 6305110-X (Version None)
Quarter: 2009Q3

REPORT INFORMATION
  Report Type: 
  Country: None (occurrence: None)
  Receive Date: 20090811
  Receipt Date: 20090730
  Transmission Date: 20100115
  Serious: Yes (Life-Threatening, Hospitalization)
  Sender: FDA-Public Use
  Company Number: NL-PFIZER INC-2009248552

PATIENT
  Age: 50 Year

DRUGS (2)
  1. CHAMPIX [Suspect]
     Indication: SMOKING CESSATION THERAPY
     Dosage: UNK
     Dates: start: 20090601, end: 20090601
  2. PARIET [Concomitant]
     Dosage: 10 MG, 1X/DAY
     Dates: start: 20090101

REACTIONS (1)
  - GASTRIC PERFORATION [None]
